FAERS Safety Report 7064913-7 (Version None)
Quarter: 2010Q4

REPORT INFORMATION
  Report Type: 
  Country: None (occurrence: None)
  Receive Date: 20101022
  Receipt Date: 20101022
  Transmission Date: 20110411
  Serious: No
  Sender: FDA-Public Use
  Company Number: None

PATIENT
  Age: 24 Year
  Sex: Female
  Weight: 56.6996 kg

DRUGS (1)
  1. AMPHETAMINE AND DEXTROAMPHETAMINE SALTS [Suspect]
     Indication: ATTENTION DEFICIT/HYPERACTIVITY DISORDER
     Dosage: 20MG 3 PO
     Route: 048
     Dates: start: 20101007, end: 20101008

REACTIONS (9)
  - COGNITIVE DISORDER [None]
  - DEPRESSION [None]
  - DISORIENTATION [None]
  - EYE DISORDER [None]
  - FATIGUE [None]
  - LETHARGY [None]
  - MENTAL IMPAIRMENT [None]
  - MIGRAINE [None]
  - PRODUCT SUBSTITUTION ISSUE [None]
